FAERS Safety Report 12779420 (Version 1)
Quarter: 2016Q3

REPORT INFORMATION
  Report Type: Spontaneous
  Country: US (occurrence: US)
  Receive Date: 20160923
  Receipt Date: 20160923
  Transmission Date: 20161109
  Serious: No
  Sender: FDA-Public Use
  Company Number: None

PATIENT
  Age: 65 Year
  Sex: Female
  Weight: 81 kg

DRUGS (11)
  1. MOBIC [Concomitant]
     Active Substance: MELOXICAM
  2. HYDROCODONE [Concomitant]
     Active Substance: HYDROCODONE
  3. PREVENTIL [Concomitant]
  4. VITAMIN D [Concomitant]
     Active Substance: CHOLECALCIFEROL
  5. FISH OIL [Concomitant]
     Active Substance: FISH OIL
  6. MULTI VITAMIN [Concomitant]
     Active Substance: VITAMINS
  7. POTASSIUM [Concomitant]
     Active Substance: POTASSIUM
  8. COUMADIN [Concomitant]
     Active Substance: WARFARIN SODIUM
  9. MORPHINE [Concomitant]
     Active Substance: MORPHINE
  10. LASIX [Concomitant]
     Active Substance: FUROSEMIDE
  11. ASMANEX [Suspect]
     Active Substance: MOMETASONE FUROATE
     Indication: ASTHMA
     Route: 055
     Dates: start: 20160919, end: 20160921

REACTIONS (2)
  - Ocular discomfort [None]
  - Vision blurred [None]

NARRATIVE: CASE EVENT DATE: 20160919
